FAERS Safety Report 11877225 (Version 1)
Quarter: 2015Q4

REPORT INFORMATION
  Report Type: Spontaneous
  Country: US (occurrence: US)
  Receive Date: 20151229
  Receipt Date: 20151229
  Transmission Date: 20160305
  Serious: No
  Sender: FDA-Public Use
  Company Number: US-RARE DISEASE THERAPEUTICS, INC.-1045991

PATIENT
  Age: 19 Year
  Sex: Female

DRUGS (9)
  1. MILK OF MAGNESIA [Concomitant]
     Active Substance: MAGNESIUM HYDROXIDE
  2. PREVACID [Concomitant]
     Active Substance: LANSOPRAZOLE
  3. ATENOLOL. [Concomitant]
     Active Substance: ATENOLOL
  4. ZONISAMIDE. [Concomitant]
     Active Substance: ZONISAMIDE
  5. CYSTADANE [Suspect]
     Active Substance: BETAINE
     Indication: NEURODEGENERATIVE DISORDER
     Route: 048
     Dates: start: 20140722
  6. BIOTIN [Concomitant]
     Active Substance: BIOTIN
  7. FOLIC ACID. [Concomitant]
     Active Substance: FOLIC ACID
  8. BACLOFEN. [Concomitant]
     Active Substance: BACLOFEN
  9. VITAMIN D [Concomitant]
     Active Substance: CHOLECALCIFEROL

REACTIONS (2)
  - Urinary tract infection [Unknown]
  - Off label use [Unknown]

NARRATIVE: CASE EVENT DATE: 20151125
